FAERS Safety Report 9202562 (Version 1)
Quarter: 2013Q2

REPORT INFORMATION
  Report Type: Spontaneous
  Country: VE (occurrence: VE)
  Receive Date: 20130401
  Receipt Date: 20130401
  Transmission Date: 20140414
  Serious: Yes (Hospitalization)
  Sender: FDA-Public Use
  Company Number: VE-ELI_LILLY_AND_COMPANY-VE201303009318

PATIENT
  Age: 68 Year
  Sex: Female

DRUGS (3)
  1. FORTEO [Suspect]
     Indication: OSTEOPOROSIS
     Dosage: 20 UG, UNK
     Route: 058
     Dates: start: 2011
  2. ACLASTA [Concomitant]
     Indication: OSTEOPOROSIS
     Dosage: 5 UNK, UNK
  3. TAPAZOL [Concomitant]
     Indication: HYPERTHYROIDISM
     Dosage: 5 MG, UNK
     Route: 048

REACTIONS (4)
  - Inflammation [Unknown]
  - Dizziness [Unknown]
  - Vomiting [Unknown]
  - Dyspnoea [Unknown]
